FAERS Safety Report 9525870 (Version 2)
Quarter: 2013Q4

REPORT INFORMATION
  Report Type: Report from Study
  Country: US (occurrence: US)
  Receive Date: 20130915
  Receipt Date: 20131004
  Transmission Date: 20140711
  Serious: Yes (Death)
  Sender: FDA-Public Use
  Company Number: US-PFIZER INC-2013257283

PATIENT
  Age: 33 Year
  Sex: Female
  Weight: 81.65 kg

DRUGS (106)
  1. CYTOSAR [Suspect]
     Indication: ACUTE LYMPHOCYTIC LEUKAEMIA
     Dosage: 3.8 G, CYCLIC (REGIMEN: DAYS 1-6,4 WEEK CYCLE)
     Route: 042
     Dates: start: 20130430, end: 20130505
  2. FLUDARABINE [Suspect]
     Indication: ACUTE LYMPHOCYTIC LEUKAEMIA
     Dosage: 57 MG, CYCLIC (REGIMEN: DAYS 2-6,4 WEEK CYCLE)
     Route: 042
     Dates: start: 20130501, end: 201305
  3. NEUPOGEN [Suspect]
     Indication: NEUTROPENIA
     Dosage: 480 MG, REGIMEN: DAILY AFTER DAY 8
     Route: 058
     Dates: start: 20130506, end: 20130525
  4. CYCLOPHOSPHAMIDE [Concomitant]
     Indication: CHEMOTHERAPY
     Dosage: 294 MG, 2X/DAY (EVERY 12 HOURS)
     Route: 042
     Dates: start: 20130604, end: 20130607
  5. MESNA [Concomitant]
     Indication: PROPHYLAXIS
     Dosage: 588 MG, SCHEDULE: 3 DAYS
     Route: 042
     Dates: start: 20130604, end: 20130607
  6. VINCRISTINE [Concomitant]
     Indication: CHEMOTHERAPY
     Dosage: 2 MG, SINGLE
     Route: 042
     Dates: start: 20130604, end: 20130604
  7. ACYCLOVIR [Concomitant]
     Indication: PROPHYLAXIS
     Dosage: 400 MG, 2X/DAY
     Route: 048
     Dates: start: 20130318
  8. DOCUSATE SODIUM [Concomitant]
     Indication: CONSTIPATION
     Dosage: 100 MG, 2X/DAY
     Dates: start: 20130318
  9. LEXAPRO [Concomitant]
     Indication: DEPRESSION
     Dosage: 10 MG, 1X/DAY
     Route: 048
     Dates: start: 20130318, end: 20130430
  10. LEXAPRO [Concomitant]
     Dosage: 20 MG, 1X/DAY
     Route: 048
     Dates: start: 20130430
  11. OXYCODONE [Concomitant]
     Indication: PAIN
     Dosage: 40 MG, 2X/DAY (SCHEDULED: Q12HR)
     Route: 048
     Dates: start: 20130318
  12. OXYCODONE [Concomitant]
     Dosage: 50 MG, 2X/DAY (SCHEDULED: Q12HR)
     Route: 048
     Dates: start: 20130430
  13. OXYCODONE [Concomitant]
     Dosage: 60 MG, 2X/DAY (SCHEDULED: Q12HR)
     Route: 048
     Dates: start: 20130501, end: 20130510
  14. OXYCODONE [Concomitant]
     Dosage: 10 MG, SINGLE
     Route: 048
     Dates: start: 20130501, end: 20130501
  15. OXYCODONE [Concomitant]
     Dosage: 60 MG, 2X/DAY
     Route: 048
     Dates: start: 20130511, end: 20130524
  16. OXYCODONE [Concomitant]
     Dosage: 60 MG, 2X/DAY
     Route: 048
     Dates: start: 20130524, end: 20130528
  17. SENNA [Concomitant]
     Indication: CONSTIPATION
     Dosage: 17.2 MG, 2X/DAY
     Route: 048
     Dates: start: 20130112
  18. GABAPENTIN [Concomitant]
     Indication: NEUROPATHY PERIPHERAL
     Dosage: 200 MG, 3X/DAY
     Route: 048
     Dates: start: 20130315, end: 20130430
  19. GABAPENTIN [Concomitant]
     Dosage: 300 MG, 3X/DAY
     Route: 048
     Dates: start: 20130430, end: 20130607
  20. DALTEPARIN [Concomitant]
     Indication: PROPHYLAXIS
     Dosage: 15000 IU, 1X/DAY (SCHEDULE: Q24HR)
     Route: 058
     Dates: start: 20130430
  21. DALTEPARIN [Concomitant]
     Dosage: 7750 IU, SINGLE
     Route: 058
     Dates: start: 20130502, end: 20130502
  22. DEXAMETHASONE [Concomitant]
     Indication: PROPHYLAXIS
     Dosage: 2 GTT, 4X/DAY (EVERY 6HRS IN BOTH EYES)
     Route: 047
     Dates: start: 20130430
  23. DEXAMETHASONE [Concomitant]
     Indication: PREMEDICATION
     Dosage: 40 MG, SINGLE
     Route: 042
     Dates: start: 20130603, end: 20130603
  24. DEXAMETHASONE [Concomitant]
     Dosage: 20 MG, 1X/DAY (SCHEDULE: Q 24 HOURS)
     Route: 042
     Dates: start: 20130605, end: 20130607
  25. NORMAL SALINE [Concomitant]
     Indication: CATHETER PLACEMENT
     Dosage: 10 ML, EVERY AM
     Route: 042
     Dates: start: 20130430
  26. NORMAL SALINE [Concomitant]
     Indication: HYPOTENSION
     Dosage: 1000 ML, SCHEDULE: CONTINUOUS
     Route: 042
     Dates: start: 20130430
  27. NORMAL SALINE [Concomitant]
     Indication: INFUSION
     Dosage: 500 ML, SINGLE
     Route: 042
     Dates: start: 20130515, end: 20130515
  28. NORMAL SALINE [Concomitant]
     Dosage: 500 ML, SINGLE
     Route: 042
     Dates: start: 20130518, end: 20130519
  29. NORMAL SALINE [Concomitant]
     Dosage: 1000 ML, SCHEDULE: CONTINUOUS
     Route: 042
     Dates: start: 20130531, end: 20130607
  30. HEPARIN [Concomitant]
     Indication: CATHETER PLACEMENT
     Dosage: 30 IU, 1X/DAY (SCHEDULE: QAM)
     Route: 042
     Dates: start: 20130430
  31. LORAZEPAM [Concomitant]
     Indication: ANXIETY
     Dosage: 1 MG, SINGLE
     Route: 048
     Dates: start: 20130430
  32. LORAZEPAM [Concomitant]
     Indication: NAUSEA
     Dosage: 5-1 MG EVERY 4 HOURS AS NEEDED
     Route: 042
     Dates: start: 20130430
  33. LORAZEPAM [Concomitant]
     Indication: PREMEDICATION
     Dosage: 5-1MG; EVERY 4 HOURS AS NEEDED
     Route: 048
     Dates: start: 20130430
  34. LORAZEPAM [Concomitant]
     Dosage: 0.5-1MG SCHEDULED: 24HRS AS NEEDED
     Route: 042
     Dates: start: 20130515, end: 20130530
  35. LORAZEPAM [Concomitant]
     Dosage: 1-2MG; SINGLE
     Route: 042
     Dates: start: 20130522, end: 20130522
  36. DILAUDID [Concomitant]
     Indication: PAIN
     Dosage: 4 MG, EVERY 4 HOURS, AS NEEDED
     Route: 048
     Dates: start: 20130501, end: 20130503
  37. DILAUDID [Concomitant]
     Indication: PREMEDICATION
     Dosage: 1 MG, SINGLE
     Route: 042
     Dates: start: 20130510, end: 20130510
  38. DILAUDID [Concomitant]
     Indication: PAIN
     Dosage: 1 MG, SINGLE
     Route: 042
     Dates: start: 20130511, end: 20130511
  39. DILAUDID [Concomitant]
     Dosage: 0.5 MG, SINGLE
     Route: 042
     Dates: start: 20130515, end: 20130515
  40. DILAUDID [Concomitant]
     Dosage: 2 MG, EVERY 24 HOURS AS NEEDED
     Route: 048
     Dates: start: 20130516, end: 20130528
  41. DILAUDID [Concomitant]
     Dosage: 1 MG, EVERY 24 HOURS AS NEEDED
     Route: 048
     Dates: start: 20130516, end: 20130516
  42. DILAUDID [Concomitant]
     Dosage: 1 MG, SINGLE
     Route: 042
     Dates: start: 20130522, end: 20130522
  43. DILAUDID [Concomitant]
     Dosage: 1-2MG; EVERY 2 HOURS AS NEEDED
     Route: 042
     Dates: start: 20130525, end: 20130528
  44. DILAUDID [Concomitant]
     Dosage: 2 MG, EVERY 2 HOURS AS NEEDED
     Route: 042
     Dates: start: 20130601, end: 20130607
  45. DILAUDID [Concomitant]
     Dosage: 1 MG, EVERY 2 HOURS AS NEEDED
     Dates: start: 20130531, end: 20130607
  46. ROXICODONE [Concomitant]
     Indication: PAIN
     Dosage: 10 MG, EVERY 4 HOURS AS NEEDED
     Route: 048
     Dates: start: 20130503, end: 20130516
  47. MAGNESIUM OXIDE [Concomitant]
     Indication: SUPPLEMENTATION THERAPY
     Dosage: 400 MG, 2X/DAY
     Route: 048
     Dates: start: 20130507, end: 20130522
  48. MAGNESIUM OXIDE [Concomitant]
     Indication: BLOOD MAGNESIUM
     Dosage: 800 MG, 2X/DAY
     Route: 048
     Dates: start: 20130522, end: 20130528
  49. MAGNESIUM OXIDE [Concomitant]
     Dosage: 500 MG, SINGLE
     Route: 048
     Dates: start: 20130603, end: 20130603
  50. LORATADINE [Concomitant]
     Indication: BONE PAIN
     Dosage: 10 MG, 1X/DAY
     Route: 048
     Dates: start: 20130507, end: 20130528
  51. PSEUDOEPHEDRINE [Concomitant]
     Indication: NASAL CONGESTION
     Dosage: 60 MG, EVERY 4 HOURS AS NEEDED
     Route: 048
     Dates: start: 20130511, end: 20130520
  52. CEFEPIME [Concomitant]
     Indication: PYREXIA
     Dosage: 2 G, 3X/DAY (EVERY 8 HOURS)
     Route: 042
     Dates: start: 20130512, end: 20130518
  53. CEFEPIME [Concomitant]
     Dosage: 2 G, 3X/DAY (3X/DAY (EVERY 8 HOURS)
     Route: 042
     Dates: start: 20130605
  54. VANCOMYCIN [Concomitant]
     Indication: PYREXIA
     Dosage: 1000 MG, 3X/DAY (3X/DAY (EVERY 8 HOURS))
     Route: 042
     Dates: start: 20130513, end: 20130514
  55. VANCOMYCIN [Concomitant]
     Dosage: 1250 MG, 3X/DAY (3X/DAY (EVERY 8 HOURS)
     Route: 042
     Dates: start: 20130514, end: 20130523
  56. VANCOMYCIN [Concomitant]
     Dosage: 1000 MG, 3X/DAY (3X/DAY (EVERY 8 HOURS))
     Route: 042
     Dates: start: 20130524, end: 20130525
  57. VANCOMYCIN [Concomitant]
     Dosage: 750 MG, 3X/DAY (3X/DAY (EVERY 8 HOURS))
     Route: 042
     Dates: start: 20130525, end: 20130527
  58. FLUTICASONE [Concomitant]
     Indication: NASAL CONGESTION
     Dosage: 50 UG, EVERY 4 HOURS AS NEEDED
     Route: 045
     Dates: start: 20130513, end: 20130513
  59. MEROPENEM [Concomitant]
     Indication: PNEUMONIA
     Dosage: 1 G, 3X/DAY (EVERY 8 HOURS)
     Route: 042
     Dates: start: 20130518, end: 20130525
  60. MEROPENEM [Concomitant]
     Indication: PYREXIA
     Dosage: 1000 MG, 3X/DAY (3X/DAY (EVERY 8 HOURS))
     Route: 042
     Dates: start: 20130531, end: 20130607
  61. MEROPENEM [Concomitant]
     Dosage: 2000 MG, 3X/DAY (3X/DAY (EVERY 8 HOURS))
     Route: 042
     Dates: start: 20130531, end: 20130531
  62. MICAFUNGIN [Concomitant]
     Indication: PNEUMONIA
     Dosage: 50 MG, 1X/DAY (EVERY 24 HOURS)
     Route: 042
     Dates: start: 20130518, end: 20130518
  63. MICAFUNGIN [Concomitant]
     Dosage: 100 MG, 1X/DAY (1X/DAY (EVERY 24 HOURS))
     Route: 042
     Dates: start: 20130519, end: 20130521
  64. VITAMIN D3 [Concomitant]
     Indication: SUPPLEMENTATION THERAPY
     Dosage: 2000 IU, 1X/DAY
     Route: 048
     Dates: start: 20130516, end: 20130607
  65. LASIX [Concomitant]
     Indication: FLUID OVERLOAD
     Dosage: 20 MG, SINGLE
     Route: 048
     Dates: start: 20130519, end: 20130519
  66. LASIX [Concomitant]
     Indication: SWELLING
     Dosage: 20 MG, SINGLE
     Route: 042
     Dates: start: 20130523, end: 20130523
  67. LASIX [Concomitant]
     Dosage: 40 MG, SINGLE
     Route: 042
     Dates: start: 20130524, end: 20130525
  68. LASIX [Concomitant]
     Dosage: 40 MG, SINGLE
     Route: 042
     Dates: start: 20130526, end: 20130526
  69. LASIX [Concomitant]
     Dosage: 40 MG, SINGLE
     Route: 042
     Dates: start: 20130527, end: 20130527
  70. LASIX [Concomitant]
     Dosage: 40 MG, SINGLE
     Route: 042
     Dates: start: 20130603, end: 20130603
  71. LASIX [Concomitant]
     Dosage: 20 MG, SINGLE
     Route: 042
     Dates: start: 20130604, end: 20130604
  72. LASIX [Concomitant]
     Dosage: 40 MG, SINGLE
     Route: 042
     Dates: start: 20130605, end: 20130605
  73. POTASSIUM PHOSPHATE [Concomitant]
     Indication: SUPPLEMENTATION THERAPY
     Dosage: 250 MG, 2X/DAY
     Route: 048
     Dates: start: 20130521, end: 20130521
  74. IOPAMIDOL [Concomitant]
     Indication: COMPUTERISED TOMOGRAM
     Dosage: 80 ML, SINGLE
     Route: 042
     Dates: start: 20130520, end: 20130520
  75. TYLENOL [Concomitant]
     Indication: PYREXIA
     Dosage: 650 MG, EVERY 6 HOURS AS NEEDED
     Route: 048
     Dates: start: 20130528, end: 20130528
  76. VORICONAZOLE [Concomitant]
     Indication: FUNGAL INFECTION
     Dosage: 500 MG, 2X/DAY (EVERY 12 HOURS)
     Route: 042
     Dates: start: 20130522, end: 20130522
  77. VORICONAZOLE [Concomitant]
     Dosage: 330 MG, 2X/DAY (2X/DAY (EVERY 12 HOURS))
     Route: 042
     Dates: start: 20130523, end: 20130527
  78. VORICONAZOLE [Concomitant]
     Dosage: 200 MG, 2X/DAY
     Route: 048
     Dates: start: 20130527, end: 20130528
  79. VORICONAZOLE [Concomitant]
     Dosage: 200 MG, 2X/DAY
     Route: 048
     Dates: start: 20130601, end: 20130607
  80. SODIUM PHOSPHATE [Concomitant]
     Indication: HYPOPHOSPHATAEMIA
     Dosage: 15 MMOL, SINGLE
     Route: 042
     Dates: start: 20130522, end: 20130522
  81. LIDOCAINE [Concomitant]
     Indication: LOCAL ANAESTHESIA
     Dosage: 10 ML, SINGLE
     Route: 023
     Dates: start: 20130522, end: 20130522
  82. LIDOCAINE [Concomitant]
     Indication: ANAESTHESIA
     Dosage: 1 %, SINGLE
     Route: 061
     Dates: start: 20130603, end: 20130603
  83. LEVOFLOXACIN [Concomitant]
     Dosage: 500 MG, 1X/DAY
     Route: 048
     Dates: start: 20130525, end: 20130528
  84. LINEZOLID [Concomitant]
     Indication: PYREXIA
     Dosage: 600 MG, 2X/DAY (EVERY 12 HOURS)
     Route: 042
     Dates: start: 20130531, end: 20130607
  85. LEVALBUTEROL [Concomitant]
     Indication: RESPIRATORY TRACT INFLAMMATION
     Dosage: 1.25 MG, 4X/DAY (EVERY 6 HOURS)
     Route: 055
     Dates: start: 20130531, end: 20130607
  86. FAMOTIDINE [Concomitant]
     Dosage: 20 MG, 2X/DAY (EVERY 12 HOURS)
     Route: 048
     Dates: start: 20130531, end: 20130607
  87. VALTREX [Concomitant]
     Indication: PROPHYLAXIS
     Dosage: 500 MG, 1X/DAY
     Route: 048
     Dates: start: 20130601, end: 20130607
  88. COLACE [Concomitant]
     Indication: CONSTIPATION
     Dosage: 100 MG, 2X/DAY
     Route: 048
     Dates: start: 20130531, end: 20130607
  89. ALLOPURINOL [Concomitant]
     Indication: PROPHYLAXIS
     Dosage: 300 MG, 1X/DAY
     Route: 048
     Dates: start: 20130531, end: 20130607
  90. POTASSIUM CHLORIDE [Concomitant]
     Indication: ELECTROLYTE SUBSTITUTION THERAPY
     Dosage: 40 MEQ, SINGLE
     Route: 048
     Dates: start: 20130601, end: 20130607
  91. POTASSIUM CHLORIDE [Concomitant]
     Dosage: 20 MEQ
     Route: 048
     Dates: start: 20130603, end: 20130603
  92. POTASSIUM CHLORIDE [Concomitant]
     Dosage: 80 MEQ, 1X/DAY (40 MEQ X 2)
     Route: 042
     Dates: start: 20130604, end: 20130604
  93. OXYCONTIN [Concomitant]
     Indication: PAIN
     Dosage: 30 MG, 2X/DAY
     Route: 048
     Dates: start: 20130601, end: 20130607
  94. LACTULOSE [Concomitant]
     Indication: CONSTIPATION
     Dosage: 30 ML, SINGLE
     Route: 048
     Dates: start: 20130601, end: 20130607
  95. TRAMADOL [Concomitant]
     Indication: PAIN
     Dosage: 25 MG, EVERY 4 HOURS AS NEEDED
     Route: 048
     Dates: start: 20130601, end: 20130607
  96. VITAMIN D [Concomitant]
     Dosage: UNK
     Dates: start: 20130531
  97. MORPHINE [Concomitant]
     Indication: PAIN
     Dosage: 2 MG, EVERY 2 HOURS AS NEEDED
     Route: 042
     Dates: start: 20130531, end: 20130607
  98. FLEET PHOSPHO-SODA [Concomitant]
     Indication: CONSTIPATION
     Dosage: 5 ML, SINGLE
     Route: 048
     Dates: start: 20130602, end: 20130602
  99. PHOSPHORUS PACKET [Concomitant]
     Indication: ELECTROLYTE SUBSTITUTION THERAPY
     Dosage: 2 PACKETS, SINGLE
     Route: 048
     Dates: start: 20130603, end: 20130603
  100. VERSED [Concomitant]
     Dosage: 2.5 MG, SINGLE
     Route: 048
     Dates: start: 20130603, end: 20130603
  101. MAGNESIUM SULFATE [Concomitant]
     Indication: ELECTROLYTE SUBSTITUTION THERAPY
     Dosage: 32 MEQ, SINGLE
     Route: 042
     Dates: start: 20130604, end: 20130604
  102. ZOFRAN [Concomitant]
     Indication: PREMEDICATION
     Dosage: 8 MG, SCHEDULE: BEFORE EACH DOSE OF CYCLOPHOSPHAMIDE
     Route: 042
     Dates: start: 20130604
  103. EMLA CREAM [Concomitant]
     Indication: ANAESTHETIC PREMEDICATION
     Dosage: DOSE: UNKNOWN; SCHEDULE: BEFORE IT
     Route: 061
     Dates: start: 20130605, end: 20130605
  104. ATIVAN [Concomitant]
     Indication: PREMEDICATION
     Dosage: 1 MG, SINGLE
     Route: 042
     Dates: start: 20130605, end: 20130605
  105. HIDROCORTIZON [Concomitant]
     Indication: PREMEDICATION
     Dosage: 25 MG, SINGLE
     Route: 042
     Dates: start: 20130605, end: 20130605
  106. IPRATROPIUM BROMIDE [Concomitant]
     Indication: RESPIRATORY TRACT INFLAMMATION
     Dosage: 2.5 ML, 4X/DAY (EVERY 6 HOURS)
     Route: 055
     Dates: start: 20130531, end: 20130607

REACTIONS (1)
  - Haemorrhage intracranial [Fatal]
